FAERS Safety Report 8942240 (Version 1)
Quarter: 2012Q4

REPORT INFORMATION
  Report Type: Spontaneous
  Country: US (occurrence: None)
  Receive Date: 20121129
  Receipt Date: 20121129
  Transmission Date: 20130627
  Serious: No
  Sender: FDA-Public Use
  Company Number: None

PATIENT
  Age: 63 Year
  Sex: Male
  Weight: 76.5 kg

DRUGS (1)
  1. DASATINIB [Suspect]
     Indication: CML
     Dosage: MG   PO
     Route: 048
     Dates: start: 20110802, end: 20120620

REACTIONS (2)
  - Pleural effusion [None]
  - Oedema [None]
